FAERS Safety Report 9470184 (Version 1)
Quarter: 2013Q3

REPORT INFORMATION
  Report Type: Spontaneous
  Country: US (occurrence: US)
  Receive Date: 20130822
  Receipt Date: 20130822
  Transmission Date: 20140515
  Serious: Yes (Other)
  Sender: FDA-Public Use
  Company Number: US-COVIDIEN/TYCO HEALTHCARE/MALLINCKRODT-T201303871

PATIENT
  Sex: Female

DRUGS (1)
  1. GABLOFEN [Suspect]
     Dosage: UNK
     Route: 037
     Dates: start: 20130513, end: 20130513

REACTIONS (3)
  - Cerebrospinal fluid leakage [Recovered/Resolved]
  - Headache [Recovered/Resolved]
  - Nausea [Recovered/Resolved]
